FAERS Safety Report 6907758-8 (Version None)
Quarter: 2010Q3

REPORT INFORMATION
  Report Type: 
  Country: None (occurrence: None)
  Receive Date: 20100805
  Receipt Date: 20100722
  Transmission Date: 20110219
  Serious: Yes (Other)
  Sender: FDA-Public Use
  Company Number: DE-RANBAXY-2010RR-33449

PATIENT
  Age: 61 Year
  Sex: Male

DRUGS (2)
  1. RAMIPRIL [Suspect]
  2. CORTISONE [Concomitant]
     Indication: GLOMERULONEPHRITIS MINIMAL LESION
     Dosage: 4 MG, UNK

REACTIONS (1)
  - CHOROIDAL EFFUSION [None]
